FAERS Safety Report 21256518 (Version 2)
Quarter: 2025Q2

REPORT INFORMATION
  Report Type: Spontaneous
  Country: GB (occurrence: GB)
  Receive Date: 20220826
  Receipt Date: 20250613
  Transmission Date: 20250717
  Serious: Yes (Hospitalization)
  Sender: AUROBINDO
  Company Number: GB-TAKEDA-2020TUS038404

PATIENT
  Sex: Female

DRUGS (22)
  1. ACYCLOVIR [Suspect]
     Active Substance: ACYCLOVIR
     Indication: Product used for unknown indication
     Route: 065
  2. ACYCLOVIR [Suspect]
     Active Substance: ACYCLOVIR
     Dosage: 400 MILLIGRAM, TWO TIMES A DAY (800 MG ONCE A DAY)
     Route: 065
  3. LENALIDOMIDE [Suspect]
     Active Substance: LENALIDOMIDE
     Indication: Product used for unknown indication
     Dosage: 10 MILLIGRAM, ONCE A DAY
     Route: 048
  4. DEXAMETHASONE [Suspect]
     Active Substance: DEXAMETHASONE
     Indication: Plasma cell myeloma refractory
     Dosage: 10 MILLIGRAM, EVERY WEEK
     Route: 065
  5. DEXAMETHASONE [Suspect]
     Active Substance: DEXAMETHASONE
     Dosage: 10 MILLIGRAM, ONCE A DAY
     Route: 065
     Dates: start: 201805
  6. IXAZOMIB [Suspect]
     Active Substance: IXAZOMIB
     Indication: Plasma cell myeloma refractory
     Dosage: 2.5 MILLIGRAM, EVERY WEEK
     Route: 048
     Dates: start: 201805
  7. LANSOPRAZOLE [Suspect]
     Active Substance: LANSOPRAZOLE
     Indication: Product used for unknown indication
     Dosage: 30 MILLIGRAM, ONCE A DAY
     Route: 065
  8. LANSOPRAZOLE [Suspect]
     Active Substance: LANSOPRAZOLE
     Route: 065
  9. NINLARO [Suspect]
     Active Substance: IXAZOMIB CITRATE
     Indication: Product used for unknown indication
     Dosage: 2.5 MILLIGRAM, EVERY WEEK
     Route: 065
  10. NINLARO [Suspect]
     Active Substance: IXAZOMIB CITRATE
     Dosage: 5 MILLIGRAM, EVERY WEEK
     Route: 065
  11. NINLARO [Suspect]
     Active Substance: IXAZOMIB CITRATE
     Dosage: 1 MILLIGRAM, EVERY WEEK
     Route: 065
  12. NINLARO [Suspect]
     Active Substance: IXAZOMIB CITRATE
     Route: 065
  13. NINLARO [Suspect]
     Active Substance: IXAZOMIB CITRATE
     Route: 065
  14. NINLARO [Suspect]
     Active Substance: IXAZOMIB CITRATE
     Route: 065
  15. NINLARO [Suspect]
     Active Substance: IXAZOMIB CITRATE
     Route: 065
  16. NINLARO [Suspect]
     Active Substance: IXAZOMIB CITRATE
     Route: 065
  17. NINLARO [Suspect]
     Active Substance: IXAZOMIB CITRATE
     Route: 065
  18. NINLARO [Suspect]
     Active Substance: IXAZOMIB CITRATE
     Route: 065
  19. NINLARO [Suspect]
     Active Substance: IXAZOMIB CITRATE
  20. METOCLOPRAMIDE [Suspect]
     Active Substance: METOCLOPRAMIDE
     Indication: Product used for unknown indication
     Dosage: 10 MILLIGRAM, ONCE A DAY
     Route: 065
  21. REVLIMID [Suspect]
     Active Substance: LENALIDOMIDE
     Indication: Plasma cell myeloma refractory
     Dosage: 10 MILLIGRAM, ONCE A DAY
     Route: 048
     Dates: start: 201805
  22. LOPERAMIDE [Concomitant]
     Active Substance: LOPERAMIDE
     Indication: Product used for unknown indication
     Route: 065

REACTIONS (6)
  - Panic attack [Not Recovered/Not Resolved]
  - Pain [Not Recovered/Not Resolved]
  - Peripheral swelling [Unknown]
  - Chronic obstructive pulmonary disease [Unknown]
  - Swelling [Unknown]
  - Product dose omission issue [Unknown]
